FAERS Safety Report 15486789 (Version 3)
Quarter: 2018Q4

REPORT INFORMATION
  Report Type: Spontaneous
  Country: BG (occurrence: BG)
  Receive Date: 20181011
  Receipt Date: 20181204
  Transmission Date: 20190205
  Serious: Yes (Hospitalization, Other)
  Sender: FDA-Public Use
  Company Number: BG-NALPROPION PHARMACEUTICALS INC.-2018-005801

PATIENT

DRUGS (1)
  1. MYSIMBA (NALTREXONE HCL/BUPROPION HCL) PROLONGED-RELEASE TABLETS [Suspect]
     Active Substance: BUPROPION HYDROCHLORIDE\NALTREXONE HYDROCHLORIDE
     Indication: PRODUCT USED FOR UNKNOWN INDICATION
     Dosage: 1 TAB/ DAY
     Route: 065
     Dates: start: 201803

REACTIONS (3)
  - Product dose omission [Recovered/Resolved]
  - Brain cancer metastatic [Unknown]
  - Lung neoplasm malignant [Unknown]
